FAERS Safety Report 19994042 (Version 1)
Quarter: 2021Q4

REPORT INFORMATION
  Report Type: Spontaneous
  Country: US (occurrence: US)
  Receive Date: 20211026
  Receipt Date: 20211026
  Transmission Date: 20220303
  Serious: No
  Sender: FDA-Public Use
  Company Number: US-SA-SAC20211021000317

PATIENT
  Age: 35 Year
  Sex: Female

DRUGS (1)
  1. DUPIXENT [Suspect]
     Active Substance: DUPILUMAB
     Indication: Dermatitis atopic
     Dosage: UNK
     Route: 058
     Dates: start: 20210927

REACTIONS (6)
  - Anxiety [Unknown]
  - Panic attack [Unknown]
  - Sleep disorder [Not Recovered/Not Resolved]
  - Dry eye [Unknown]
  - Eye pain [Unknown]
  - Eczema [Unknown]

NARRATIVE: CASE EVENT DATE: 20210101
